FAERS Safety Report 20513781 (Version 1)
Quarter: 2022Q1

REPORT INFORMATION
  Report Type: Spontaneous
  Country: US (occurrence: US)
  Receive Date: 20220224
  Receipt Date: 20220224
  Transmission Date: 20220423
  Serious: No
  Sender: FDA-Public Use
  Company Number: US-AMNEAL PHARMACEUTICALS-2021-AMRX-02759

PATIENT
  Age: 78 Year
  Sex: Female
  Weight: 80 kg

DRUGS (8)
  1. RYTARY [Suspect]
     Active Substance: CARBIDOPA\LEVODOPA
     Indication: Parkinson^s disease
     Dosage: 2 CAPSULES, 4X/DAY
     Route: 065
     Dates: start: 202003
  2. RYTARY [Suspect]
     Active Substance: CARBIDOPA\LEVODOPA
     Dosage: 1 CAPSULES, 5X/DAY
     Route: 065
     Dates: start: 202101, end: 202101
  3. RYTARY [Suspect]
     Active Substance: CARBIDOPA\LEVODOPA
     Dosage: 2 CAPSULES, 3X/DAY
     Route: 065
     Dates: start: 20210114, end: 202102
  4. RYTARY [Suspect]
     Active Substance: CARBIDOPA\LEVODOPA
     Dosage: 3 CAPSULES, 3X/DAY
     Route: 065
     Dates: start: 20210219, end: 202106
  5. RYTARY [Suspect]
     Active Substance: CARBIDOPA\LEVODOPA
     Dosage: 3 CAPSULES, 4X/DAY
     Route: 065
     Dates: start: 20210621
  6. AMANTADINE [Concomitant]
     Active Substance: AMANTADINE
     Indication: Product used for unknown indication
     Dosage: 100 MILLIGRAM, 1X/DAY
     Route: 065
     Dates: start: 20210701
  7. AMANTADINE [Concomitant]
     Active Substance: AMANTADINE
     Dosage: 100 MILLIGRAM, 2X/DAY
     Route: 065
     Dates: start: 20210714
  8. AMANTADINE [Concomitant]
     Active Substance: AMANTADINE
     Dosage: 100 MILLIGRAM, 3X/DAY
     Route: 065
     Dates: start: 20210813

REACTIONS (3)
  - Chills [Not Recovered/Not Resolved]
  - Dysgraphia [Unknown]
  - Tremor [Not Recovered/Not Resolved]

NARRATIVE: CASE EVENT DATE: 20200301
